FAERS Safety Report 25863526 (Version 1)
Quarter: 2025Q3

REPORT INFORMATION
  Report Type: Other
  Country: ID (occurrence: ID)
  Receive Date: 20250930
  Receipt Date: 20250930
  Transmission Date: 20251020
  Serious: Yes (Hospitalization, Other)
  Sender: ANI
  Company Number: ID-ANIPHARMA-030769

PATIENT
  Age: 54 Year
  Sex: Female

DRUGS (1)
  1. PROPAFENONE [Suspect]
     Active Substance: PROPAFENONE
     Indication: Atrial fibrillation

REACTIONS (5)
  - Depressed level of consciousness [Recovering/Resolving]
  - Myocardial ischaemia [Recovering/Resolving]
  - Hypotension [Recovering/Resolving]
  - Toxicity to various agents [Unknown]
  - Nodal arrhythmia [Recovering/Resolving]
